FAERS Safety Report 14660666 (Version 4)
Quarter: 2018Q3

REPORT INFORMATION
  Report Type: Spontaneous
  Country: US (occurrence: US)
  Receive Date: 20180320
  Receipt Date: 20180703
  Transmission Date: 20181010
  Serious: Yes (Other)
  Sender: FDA-Public Use
  Company Number: US-GLAXOSMITHKLINE-US2018044068

PATIENT
  Sex: Male

DRUGS (15)
  1. BIOTIN [Concomitant]
     Active Substance: BIOTIN
  2. EXCEDRIN MIGRAINE [Suspect]
     Active Substance: ACETAMINOPHEN\ASPIRIN\CAFFEINE
     Indication: HEADACHE
     Dosage: UNK
  3. ASPIRIN. [Concomitant]
     Active Substance: ASPIRIN
  4. PROPANOLOL [Concomitant]
     Active Substance: PROPRANOLOL HYDROCHLORIDE
  5. VITAMIN B12 [Concomitant]
     Active Substance: CYANOCOBALAMIN
  6. TYLENOL [Concomitant]
     Active Substance: ACETAMINOPHEN
  7. BREO ELLIPTA [Suspect]
     Active Substance: FLUTICASONE FUROATE\VILANTEROL TRIFENATATE
     Indication: CHRONIC OBSTRUCTIVE PULMONARY DISEASE
     Dosage: 100/25 MCG, 1 PUFF(S), QD
  8. TRELSTAR [Concomitant]
     Active Substance: TRIPTORELIN PAMOATE
  9. QUININE [Concomitant]
     Active Substance: QUININE
  10. OMEPRAZOLE. [Concomitant]
     Active Substance: OMEPRAZOLE
  11. EXCEDRIN [Suspect]
     Active Substance: ACETAMINOPHEN\ASPIRIN\CAFFEINE
     Indication: PRODUCT USED FOR UNKNOWN INDICATION
  12. FIORICET [Suspect]
     Active Substance: ACETAMINOPHEN\BUTALBITAL\CAFFEINE
     Indication: PRODUCT USED FOR UNKNOWN INDICATION
  13. TUMERIC [Concomitant]
     Active Substance: HERBALS\TURMERIC
  14. BREO ELLIPTA [Suspect]
     Active Substance: FLUTICASONE FUROATE\VILANTEROL TRIFENATATE
     Indication: ASTHMA
     Dosage: 1 PUFF(S), QD IN THE MORNING
     Route: 055
     Dates: start: 2017
  15. IBUPROFEN. [Suspect]
     Active Substance: IBUPROFEN
     Indication: PRODUCT USED FOR UNKNOWN INDICATION

REACTIONS (11)
  - Prostate cancer recurrent [Unknown]
  - Stress [Unknown]
  - Ill-defined disorder [Unknown]
  - Tinnitus [Unknown]
  - Rhinorrhoea [Not Recovered/Not Resolved]
  - Headache [Not Recovered/Not Resolved]
  - Tension [Unknown]
  - Dysphonia [Unknown]
  - Medication overuse headache [Unknown]
  - Oropharyngeal pain [Not Recovered/Not Resolved]
  - Muscle spasms [Recovered/Resolved with Sequelae]
